FAERS Safety Report 12083523 (Version 1)
Quarter: 2016Q1

REPORT INFORMATION
  Report Type: Spontaneous
  Country: US (occurrence: US)
  Receive Date: 20160217
  Receipt Date: 20160217
  Transmission Date: 20160526
  Serious: Yes (Death, Hospitalization)
  Sender: FDA-Public Use
  Company Number: US-BAYER-2016-029599

PATIENT
  Age: 85 Year
  Sex: Male

DRUGS (9)
  1. FERROUS SULFATE [Concomitant]
     Active Substance: FERROUS SULFATE\FERROUS SULFATE, DRIED
  2. TENORMIN [Concomitant]
     Active Substance: ATENOLOL
  3. FOLIC ACID. [Concomitant]
     Active Substance: FOLIC ACID
  4. ACETAMINOPHEN. [Concomitant]
     Active Substance: ACETAMINOPHEN
  5. SYMBICORT [Concomitant]
     Active Substance: BUDESONIDE\FORMOTEROL FUMARATE DIHYDRATE
  6. IBRUTINIB [Suspect]
     Active Substance: IBRUTINIB
     Indication: LYMPHOMA
  7. XARELTO [Suspect]
     Active Substance: RIVAROXABAN
  8. IBRUTINIB [Suspect]
     Active Substance: IBRUTINIB
     Indication: RECTOSIGMOID CANCER
     Dosage: 420 MG, QD
     Route: 048
     Dates: start: 20150825
  9. BAYER GENUINE ASPIRIN [Suspect]
     Active Substance: ASPIRIN

REACTIONS (3)
  - Labelled drug-drug interaction medication error [None]
  - Urinary bladder haemorrhage [Recovered/Resolved]
  - Death [Fatal]

NARRATIVE: CASE EVENT DATE: 20150826
